FAERS Safety Report 21412009 (Version 1)
Quarter: 2022Q4

REPORT INFORMATION
  Report Type: Spontaneous
  Country: US (occurrence: None)
  Receive Date: 20221004
  Receipt Date: 20221004
  Transmission Date: 20230113
  Serious: No
  Sender: FDA-Public Use
  Company Number: None

PATIENT
  Sex: Male
  Weight: 75.75 kg

DRUGS (12)
  1. BRAFTOVI [Suspect]
     Active Substance: ENCORAFENIB
     Indication: Colon cancer
     Dosage: FREQUENCY : TWICE A DAY;?
     Route: 048
     Dates: start: 20220804, end: 20221003
  2. ACETAMINOPHEN [Concomitant]
     Active Substance: ACETAMINOPHEN
  3. CO Q 10 (SYN) [Concomitant]
  4. DILTIAZEM [Concomitant]
     Active Substance: DILTIAZEM
  5. DUTASTERIDE [Concomitant]
     Active Substance: DUTASTERIDE
  6. ELIQUIS [Concomitant]
     Active Substance: APIXABAN
  7. ELIQUIS [Concomitant]
     Active Substance: APIXABAN
  8. FUROSEMIDE [Concomitant]
     Active Substance: FUROSEMIDE
  9. METOPROLOL [Concomitant]
     Active Substance: METOPROLOL
  10. NEXIUM [Concomitant]
     Active Substance: ESOMEPRAZOLE MAGNESIUM
  11. VITAMIN D3 [Concomitant]
     Active Substance: CHOLECALCIFEROL
  12. ZOFRAN [Concomitant]
     Active Substance: ONDANSETRON HYDROCHLORIDE

REACTIONS (2)
  - Haematocrit decreased [None]
  - Therapy interrupted [None]
